FAERS Safety Report 21397477 (Version 1)
Quarter: 2022Q3

REPORT INFORMATION
  Report Type: Spontaneous
  Country: US (occurrence: None)
  Receive Date: 20220930
  Receipt Date: 20220930
  Transmission Date: 20221027
  Serious: Yes (Disabling)
  Sender: FDA-Public Use
  Company Number: None

PATIENT
  Age: 31 Year
  Sex: Female
  Weight: 63.5 kg

DRUGS (1)
  1. ALCOHOL ANTISEPTIC [Suspect]
     Active Substance: ISOPROPYL ALCOHOL
     Indication: Infection prophylaxis
     Dates: start: 20210101, end: 20220927

REACTIONS (1)
  - Skin discolouration [None]

NARRATIVE: CASE EVENT DATE: 20210101
